FAERS Safety Report 5963601-5 (Version None)
Quarter: 2008Q4

REPORT INFORMATION
  Report Type: 
  Country: None (occurrence: None)
  Receive Date: 20081124
  Receipt Date: 20081118
  Transmission Date: 20090506
  Serious: Yes (Other)
  Sender: FDA-Public Use
  Company Number: JP-MERCK-0811USA03018

PATIENT
  Age: 79 Year
  Sex: Female

DRUGS (2)
  1. FOSAMAX [Suspect]
     Indication: OSTEOPOROSIS
     Route: 048
     Dates: start: 20080926, end: 20081114
  2. FOSAMAX [Suspect]
     Route: 048
     Dates: start: 20080529, end: 20080702

REACTIONS (2)
  - DENTAL FISTULA [None]
  - OSTEOMYELITIS [None]
